FAERS Safety Report 7594131-5 (Version None)
Quarter: 2011Q3

REPORT INFORMATION
  Report Type: 
  Country: None (occurrence: None)
  Receive Date: 20110706
  Receipt Date: 20110625
  Transmission Date: 20111222
  Serious: Yes (Death)
  Sender: FDA-Public Use
  Company Number: US-PFIZER INC-2011134474

PATIENT
  Sex: Male
  Weight: 75.283 kg

DRUGS (2)
  1. NEXIUM [Concomitant]
     Dosage: 20 MG, UNK
  2. CELECOXIB [Suspect]
     Indication: OSTEOARTHRITIS
     Dosage: 100 MG, 2X/DAY
     Dates: end: 20080808

REACTIONS (1)
  - DEATH [None]
